FAERS Safety Report 7557980-5 (Version None)
Quarter: 2011Q2

REPORT INFORMATION
  Report Type: 
  Country: None (occurrence: None)
  Receive Date: 20110620
  Receipt Date: 20110610
  Transmission Date: 20111010
  Serious: Yes (Hospitalization)
  Sender: FDA-Public Use
  Company Number: IE-ASTRAZENECA-2011SE35571

PATIENT
  Sex: Female

DRUGS (1)
  1. ZESTRIL [Suspect]
     Indication: HYPERTENSION
     Route: 048

REACTIONS (2)
  - SEPSIS [None]
  - RENAL FAILURE [None]
